FAERS Safety Report 25953473 (Version 1)
Quarter: 2025Q4

REPORT INFORMATION
  Report Type: Spontaneous
  Country: EU (occurrence: EU)
  Receive Date: 20251023
  Receipt Date: 20251023
  Transmission Date: 20260118
  Serious: Yes (Disabling)
  Sender: TEVA
  Company Number: None

PATIENT
  Age: 23 Year
  Sex: Female

DRUGS (3)
  1. ISOTRETINOIN [Suspect]
     Active Substance: ISOTRETINOIN
     Indication: Acne
     Dosage: MY BODY TOLERATED THE MEDICATION VERY POORLY, THUS I^VE TAKEN IT FOR SO LONG BECAUSE AT TIMES I H...
     Route: 065
  2. ISOTRETINOIN [Suspect]
     Active Substance: ISOTRETINOIN
     Indication: Acne
     Dosage: 20MG / DAY; ISOTRETINOIN ACTAVIS
     Route: 048
     Dates: start: 201511, end: 201612
  3. ISOTRETINOIN [Suspect]
     Active Substance: ISOTRETINOIN
     Indication: Acne
     Dosage: MY BODY TOLERATED THE MEDICATION VERY POORLY, THUS I^VE TAKEN IT FOR SO LONG BECAUSE AT TIMES I H...
     Route: 065

REACTIONS (17)
  - Photosensitivity reaction [Not Recovered/Not Resolved]
  - Eye pain [Recovered/Resolved with Sequelae]
  - Facial discomfort [Recovered/Resolved with Sequelae]
  - Dry eye [Recovered/Resolved with Sequelae]
  - Skin atrophy [Not Recovered/Not Resolved]
  - Mucosal dryness [Recovered/Resolved with Sequelae]
  - Mucosal pain [Recovered/Resolved with Sequelae]
  - Pain [Recovered/Resolved with Sequelae]
  - Depression [Recovered/Resolved with Sequelae]
  - Laboratory test abnormal [Recovered/Resolved with Sequelae]
  - Self esteem decreased [Recovered/Resolved with Sequelae]
  - Mental disorder [Recovered/Resolved with Sequelae]
  - Sunburn [Recovered/Resolved with Sequelae]
  - Skin laxity [Not Recovered/Not Resolved]
  - Body dysmorphic disorder [Recovered/Resolved with Sequelae]
  - Arthralgia [Recovered/Resolved with Sequelae]
  - Skin injury [Recovered/Resolved with Sequelae]

NARRATIVE: CASE EVENT DATE: 20170501
